FAERS Safety Report 8987903 (Version 1)
Quarter: 2012Q4

REPORT INFORMATION
  Report Type: 
  Country: JP (occurrence: JP)
  Receive Date: 20121227
  Receipt Date: 20121227
  Transmission Date: 20130627
  Serious: Yes (Other)
  Sender: FDA-Public Use
  Company Number: JP-GLAXOSMITHKLINE-B0854577A

PATIENT
  Age: 7 None
  Sex: Male

DRUGS (2)
  1. REQUIP [Suspect]
     Indication: PARKINSON^S DISEASE
     Dosage: 4MG Per day
     Route: 048
  2. REQUIP [Suspect]
     Indication: PARKINSON^S DISEASE
     Dosage: 6MG Per day
     Route: 048

REACTIONS (1)
  - Sudden onset of sleep [Recovered/Resolved]
